FAERS Safety Report 8328144-2 (Version None)
Quarter: 2012Q2

REPORT INFORMATION
  Report Type: 
  Country: None (occurrence: None)
  Receive Date: 20120502
  Receipt Date: 20120430
  Transmission Date: 20120825
  Serious: Yes (Other)
  Sender: FDA-Public Use
  Company Number: PHEH2012US009143

PATIENT
  Sex: Female

DRUGS (42)
  1. ATARAX [Concomitant]
  2. CLONAZEPAM [Concomitant]
  3. INSULIN ASPART [Concomitant]
  4. LIDODERM [Concomitant]
     Dosage: UNK UKN, UNK
  5. ACETAMINOPHEN [Concomitant]
     Dosage: UNK UKN, UNK
  6. VALIUM [Concomitant]
     Dosage: UNK UKN, UNK
  7. ONDANSETRON [Concomitant]
     Dosage: UNK UKN, UNK
  8. ADVAIR DISKUS 100/50 [Concomitant]
     Dosage: UNK UKN, UNK
  9. ATOVERT [Concomitant]
  10. DOC-Q-LACE [Concomitant]
  11. ZOCOR [Concomitant]
     Dosage: UNK UKN, UNK
  12. DESENEX POWDER [Concomitant]
     Dosage: UNK UKN, UNK
  13. RECLAST [Suspect]
     Dosage: UNK UKN, UNK
     Route: 042
     Dates: start: 20110601
  14. ABILIFY [Concomitant]
  15. BENTYL [Concomitant]
  16. FIBRE [Concomitant]
  17. PRAZOFIN [Concomitant]
  18. NYSTATIN [Concomitant]
     Dosage: UNK UKN, UNK
  19. ALBUTEROL [Concomitant]
     Dosage: UNK UKN, UNK
  20. SUCRALFATE [Concomitant]
     Dosage: UNK UKN, UNK
  21. IPRATROPIUM BROMIDE [Concomitant]
  22. ASCORBIC ACID [Concomitant]
  23. CALCIUM WITH VITAMIN D [Concomitant]
  24. PROTONIX [Concomitant]
  25. IBUPROFEN [Concomitant]
     Dosage: UNK UKN, UNK
  26. ALVESCO [Concomitant]
  27. PEPCID [Concomitant]
  28. MALEATE [Concomitant]
  29. INSULIN HUMAN [Concomitant]
  30. DILAUDID [Concomitant]
     Dosage: UNK UKN, UNK
  31. SIMETHICONE [Concomitant]
     Dosage: UNK UKN, UNK
  32. BACLOFEN [Concomitant]
     Dosage: UNK UKN, UNK
  33. BENZONATATE [Concomitant]
     Dosage: UNK UKN, UNK
  34. TRICOR [Concomitant]
  35. SEROQUEL [Concomitant]
  36. BRAINSTRONG [Concomitant]
     Dosage: UNK UKN, UNK
  37. NEURONTIN [Concomitant]
     Dosage: UNK UKN, UNK
  38. COUMADIN [Concomitant]
  39. SARNA [Concomitant]
     Dosage: UNK UKN, UNK
  40. FLUVOXAMINE MALEATE [Concomitant]
  41. PROAIR HFA [Concomitant]
     Dosage: UNK UKN, UNK
  42. FLUTICASONE PROPIONATE [Concomitant]
     Dosage: UNK UKN, UNK

REACTIONS (10)
  - ANKLE FRACTURE [None]
  - VISION BLURRED [None]
  - HYPOAESTHESIA [None]
  - DIPLOPIA [None]
  - CHOKING [None]
  - ABDOMINAL DISCOMFORT [None]
  - GROIN PAIN [None]
  - ARTHRALGIA [None]
  - LOWER LIMB FRACTURE [None]
  - DYSPHAGIA [None]
